FAERS Safety Report 4970049-9 (Version None)
Quarter: 2006Q2

REPORT INFORMATION
  Report Type: 
  Country: None (occurrence: None)
  Receive Date: 20060406
  Receipt Date: 20060324
  Transmission Date: 20061013
  Serious: Yes (Hospitalization, Disabling, Other)
  Sender: FDA-Public Use
  Company Number: 2006_000005

PATIENT
  Age: 18 Year
  Sex: Female

DRUGS (10)
  1. DEPOCYT [Suspect]
     Indication: LEUKAEMIA
     Dosage: 50 MG;QOW;INTH
     Route: 037
     Dates: end: 20050608
  2. DEPOCYT [Suspect]
     Indication: PROPHYLAXIS
     Dosage: 50 MG;QOW;INTH
     Route: 037
     Dates: end: 20050608
  3. DEXAMETHASONE [Concomitant]
  4. METHOTREXATE [Concomitant]
  5. CYTARABINE [Concomitant]
  6. VINCRISTINE [Concomitant]
  7. NEUPOGEN [Concomitant]
  8. CIRPOFLOXACIN [Concomitant]
  9. CANCIDAS [Concomitant]
  10. VALTREX [Concomitant]

REACTIONS (5)
  - BLINDNESS UNILATERAL [None]
  - INTRACRANIAL PRESSURE INCREASED [None]
  - PAPILLOEDEMA [None]
  - SUBDURAL HAEMATOMA [None]
  - VISUAL ACUITY REDUCED [None]
